FAERS Safety Report 4808399-9 (Version None)
Quarter: 2005Q4

REPORT INFORMATION
  Report Type: 
  Country: None (occurrence: None)
  Receive Date: 20051021
  Receipt Date: 20030918
  Transmission Date: 20060501
  Serious: Yes (Hospitalization)
  Sender: FDA-Public Use
  Company Number: FR_030902908

PATIENT
  Age: 50 Year
  Sex: Female

DRUGS (2)
  1. ZYPREXA [Suspect]
     Indication: BIPOLAR I DISORDER
     Dosage: 10 MG/DAY
     Dates: start: 20030401
  2. LITHIUM CARBONATE [Concomitant]

REACTIONS (5)
  - DELIRIUM [None]
  - MANIA [None]
  - PHLEBITIS [None]
  - PULMONARY EMBOLISM [None]
  - WEIGHT INCREASED [None]
